FAERS Safety Report 5512284-7 (Version None)
Quarter: 2007Q4

REPORT INFORMATION
  Report Type: 
  Country: None (occurrence: None)
  Receive Date: 20071112
  Receipt Date: 20070917
  Transmission Date: 20080405
  Serious: No
  Sender: FDA-Public Use
  Company Number: A0682421A

PATIENT
  Sex: Female

DRUGS (2)
  1. VERAMYST [Suspect]
     Route: 045
     Dates: start: 20070101, end: 20070101
  2. ALLERGY MEDICATION [Suspect]
     Route: 048

REACTIONS (1)
  - URTICARIA [None]
